FAERS Safety Report 19514412 (Version 1)
Quarter: 2021Q3

REPORT INFORMATION
  Report Type: Report from Study
  Country: CA (occurrence: CA)
  Receive Date: 20210709
  Receipt Date: 20210709
  Transmission Date: 20211014
  Serious: Yes (Hospitalization)
  Sender: FDA-Public Use
  Company Number: CA-EISAI MEDICAL RESEARCH-EC-2021-095816

PATIENT
  Age: 69 Year
  Sex: Male
  Weight: 94.5 kg

DRUGS (5)
  1. LENVIMA [Suspect]
     Active Substance: LENVATINIB
     Indication: HEPATOCELLULAR CARCINOMA
     Dosage: INCREASED FROM 8 MG TO 12 MG/DAY AROUND END OF MARCH 2020
     Route: 048
     Dates: start: 20200229, end: 202003
  2. LENVIMA [Suspect]
     Active Substance: LENVATINIB
     Route: 048
     Dates: start: 202007
  3. LENVIMA [Suspect]
     Active Substance: LENVATINIB
     Dosage: STOPPED LENVIMA ABOUT 1.5 WEEK AGO DUE TO SIDE EFFECTS
     Route: 048
     Dates: start: 202003, end: 202004
  4. LENVIMA [Suspect]
     Active Substance: LENVATINIB
     Route: 048
  5. LENVIMA [Suspect]
     Active Substance: LENVATINIB
     Route: 048
     Dates: start: 20210422, end: 2021

REACTIONS (1)
  - Hepatic failure [Recovered/Resolved]

NARRATIVE: CASE EVENT DATE: 2021
